FAERS Safety Report 12937351 (Version 1)
Quarter: 2016Q4

REPORT INFORMATION
  Report Type: Spontaneous
  Country: US (occurrence: US)
  Receive Date: 20161114
  Receipt Date: 20161114
  Transmission Date: 20170207
  Serious: Yes (Hospitalization)
  Sender: FDA-Public Use
  Company Number: US-PFIZER INC-3177442

PATIENT
  Age: 76 Year
  Sex: Female
  Weight: 110.7 kg

DRUGS (3)
  1. DIAZEPAM. [Suspect]
     Active Substance: DIAZEPAM
     Indication: ANXIETY
     Dosage: 5 MG, ONCE
     Route: 040
     Dates: start: 20160213, end: 20160213
  2. DILAUDID [Concomitant]
     Active Substance: HYDROMORPHONE HYDROCHLORIDE
     Dosage: 0.5-1 MG ; Q2; 2 DOSES, FREQ: AS NEEDED
     Route: 040
     Dates: start: 20160213, end: 20160213
  3. DILAUDID [Concomitant]
     Active Substance: HYDROMORPHONE HYDROCHLORIDE
     Indication: PAIN
     Dosage: 2 MG, Q2; 1 DOSE, FREQ: AS NEEDED
     Route: 040
     Dates: start: 20160213, end: 20160213

REACTIONS (1)
  - Cardiac arrest [Recovered/Resolved]

NARRATIVE: CASE EVENT DATE: 20160213
